FAERS Safety Report 4524993-7 (Version None)
Quarter: 2004Q4

REPORT INFORMATION
  Report Type: 
  Country: None (occurrence: None)
  Receive Date: 20041117
  Receipt Date: 20030701
  Transmission Date: 20050328
  Serious: Yes (Other)
  Sender: FDA-Public Use
  Company Number: C2003-1693.01

PATIENT
  Age: 34 Year
  Sex: Male

DRUGS (2)
  1. CLOZAPINE [Suspect]
     Dosage: 400MG QD, ORAL
     Route: 048
     Dates: start: 20021215
  2. FLUPHENAZINE DECONOATE [Concomitant]

REACTIONS (1)
  - NEUTROPENIA [None]
